FAERS Safety Report 5234343-9 (Version None)
Quarter: 2007Q1

REPORT INFORMATION
  Report Type: 
  Country: None (occurrence: None)
  Receive Date: 20070209
  Receipt Date: 20070201
  Transmission Date: 20070707
  Serious: Yes (Other)
  Sender: FDA-Public Use
  Company Number: JP-ABBOTT-07P-087-0357901-00

PATIENT
  Age: 74 Year
  Sex: Male
  Weight: 58 kg

DRUGS (10)
  1. SEVOFLURANE [Suspect]
     Indication: MAINTENANCE OF ANAESTHESIA
     Dosage: NOT REPORTED
  2. SEVOFLURANE [Suspect]
     Dosage: 0.2 TO 2.0 %
  3. HYDROXYZINE [Concomitant]
     Indication: ANAESTHETIC PREMEDICATION
     Route: 030
  4. ATROPINE [Concomitant]
     Indication: ANAESTHETIC PREMEDICATION
     Route: 030
  5. VECURONIUM BROMIDE [Concomitant]
     Indication: INDUCTION OF ANAESTHESIA
     Dosage: NOT REPORTED
  6. OXYGEN [Concomitant]
     Indication: MAINTENANCE OF ANAESTHESIA
     Dosage: NOT REPORTED
  7. NITROUS OXIDE W/ OXYGEN [Concomitant]
     Indication: MAINTENANCE OF ANAESTHESIA
     Dosage: NOT REPORTED
  8. TRIMETAPHAN [Concomitant]
     Indication: MAINTENANCE OF ANAESTHESIA
     Dosage: INFUSION
  9. PENTAZOSINE [Concomitant]
     Indication: ANAESTHETIC PREMEDICATION
     Route: 030
  10. THYAMIRAL [Concomitant]
     Indication: INDUCTION OF ANAESTHESIA
     Dosage: NOT REPORTED

REACTIONS (1)
  - PULMONARY OEDEMA [None]
